FAERS Safety Report 21391074 (Version 1)
Quarter: 2022Q3

REPORT INFORMATION
  Report Type: Spontaneous
  Country: SK (occurrence: SK)
  Receive Date: 20220929
  Receipt Date: 20220929
  Transmission Date: 20221026
  Serious: Yes (Other)
  Sender: FDA-Public Use
  Company Number: SK-PFIZER INC-PV202200071727

PATIENT
  Sex: Female

DRUGS (1)
  1. BOSULIF [Suspect]
     Active Substance: BOSUTINIB MONOHYDRATE
     Indication: Chronic myeloid leukaemia
     Dosage: 100 MG
     Dates: start: 20220420

REACTIONS (3)
  - Cardiac disorder [Unknown]
  - Cardiotoxicity [Unknown]
  - Hydrothorax [Unknown]

NARRATIVE: CASE EVENT DATE: 20220901
